FAERS Safety Report 12173776 (Version 3)
Quarter: 2016Q2

REPORT INFORMATION
  Report Type: Spontaneous
  Country: US (occurrence: US)
  Receive Date: 20160314
  Receipt Date: 20160504
  Transmission Date: 20160815
  Serious: Yes (Other)
  Sender: FDA-Public Use
  Company Number: US-BEH-2016059789

PATIENT
  Sex: Female
  Weight: 56 kg

DRUGS (35)
  1. ACETONIDE [Concomitant]
  2. CARAFTE [Concomitant]
  3. AZITHROMYCIN ANHYDROUS. [Concomitant]
     Active Substance: AZITHROMYCIN ANHYDROUS
  4. ATIVAN [Concomitant]
     Active Substance: LORAZEPAM
  5. ACETAMINOPHEN. [Concomitant]
     Active Substance: ACETAMINOPHEN
  6. DIPHENHYDRAMINE. [Concomitant]
     Active Substance: DIPHENHYDRAMINE
  7. DIAZEPAM. [Concomitant]
     Active Substance: DIAZEPAM
  8. ADULT ASPIRIN [Concomitant]
  9. HIZENTRA [Suspect]
     Active Substance: HUMAN IMMUNOGLOBULIN G
     Indication: IMMUNODEFICIENCY COMMON VARIABLE
     Route: 058
  10. ALBUTEROL. [Concomitant]
     Active Substance: ALBUTEROL
  11. XANAX [Concomitant]
     Active Substance: ALPRAZOLAM
  12. LIPITOR [Concomitant]
     Active Substance: ATORVASTATIN CALCIUM
  13. CLARITIN [Concomitant]
     Active Substance: LORATADINE
  14. COMBIVENT [Concomitant]
     Active Substance: ALBUTEROL SULFATE\IPRATROPIUM BROMIDE
  15. VERAPAMIL [Concomitant]
     Active Substance: VERAPAMIL HYDROCHLORIDE
  16. EPIPEN [Concomitant]
     Active Substance: EPINEPHRINE
  17. TRAZODONE [Concomitant]
     Active Substance: TRAZODONE HYDROCHLORIDE
  18. METOPROLOL. [Concomitant]
     Active Substance: METOPROLOL
  19. QVAR [Concomitant]
     Active Substance: BECLOMETHASONE DIPROPIONATE
  20. NEXIUM [Concomitant]
     Active Substance: ESOMEPRAZOLE MAGNESIUM
  21. TRIAMCINOLONE [Concomitant]
     Active Substance: TRIAMCINOLONE
  22. CLOTRIMAZOLE AND BETAMETHASONE DIPROPIONATE [Concomitant]
     Active Substance: BETAMETHASONE\BETAMETHASONE DIPROPIONATE\CLOTRIMAZOLE
  23. CYPROHEPTADINE. [Concomitant]
     Active Substance: CYPROHEPTADINE
  24. NAPROXEN. [Concomitant]
     Active Substance: NAPROXEN
  25. ZOCOR [Concomitant]
     Active Substance: SIMVASTATIN
  26. NORCO [Concomitant]
     Active Substance: ACETAMINOPHEN\HYDROCODONE BITARTRATE
  27. BACLOFEN. [Concomitant]
     Active Substance: BACLOFEN
  28. LYRICA [Concomitant]
     Active Substance: PREGABALIN
  29. SYMBICORT [Concomitant]
     Active Substance: BUDESONIDE\FORMOTEROL FUMARATE DIHYDRATE
  30. HYDROXYZINE [Concomitant]
     Active Substance: HYDROXYZINE\HYDROXYZINE HYDROCHLORIDE
  31. OXYGEN. [Concomitant]
     Active Substance: OXYGEN
  32. HIZENTRA [Suspect]
     Active Substance: HUMAN IMMUNOGLOBULIN G
     Route: 058
  33. PREDNISONE. [Concomitant]
     Active Substance: PREDNISONE
  34. CYMBALTA [Concomitant]
     Active Substance: DULOXETINE HYDROCHLORIDE
  35. PROAIR HFA [Concomitant]
     Active Substance: ALBUTEROL SULFATE

REACTIONS (1)
  - Pulmonary oedema [Unknown]
